FAERS Safety Report 6485757-0 (Version None)
Quarter: 2009Q4

REPORT INFORMATION
  Report Type: 
  Country: None (occurrence: None)
  Receive Date: 20091204
  Receipt Date: 20091120
  Transmission Date: 20100525
  Serious: Yes (Other)
  Sender: FDA-Public Use
  Company Number: 8054402

PATIENT
  Age: 37 Year
  Sex: Male

DRUGS (6)
  1. CERTOLIZUMAB PEGOL [Suspect]
     Indication: CROHN'S DISEASE
     Dosage: 400 MG 1/2W SC
     Route: 058
     Dates: start: 20040826, end: 20040923
  2. CERTOLIZUMAB PEGOL [Suspect]
     Indication: CROHN'S DISEASE
     Dosage: 400 MG /M SC
     Route: 058
     Dates: start: 20050328, end: 20081216
  3. CIMZIA [Suspect]
     Indication: CROHN'S DISEASE
     Dosage: 400 MG 1/2W  SC
     Route: 058
     Dates: start: 20090114
  4. ASACOL [Concomitant]
  5. CANASA [Concomitant]
  6. NIFEDIPINE [Concomitant]

REACTIONS (6)
  - DISEASE RECURRENCE [None]
  - FREQUENT BOWEL MOVEMENTS [None]
  - INFECTION [None]
  - PERIRECTAL ABSCESS [None]
  - PURULENCE [None]
  - SINUSITIS [None]
